FAERS Safety Report 6389762-4 (Version None)
Quarter: 2009Q4

REPORT INFORMATION
  Report Type: 
  Country: None (occurrence: None)
  Receive Date: 20091002
  Receipt Date: 20091002
  Transmission Date: 20100525
  Serious: No
  Sender: FDA-Public Use
  Company Number: None

PATIENT
  Age: 19 Month
  Sex: Male

DRUGS (1)
  1. SOJOURN [Suspect]
     Indication: DENTAL CARE
     Dosage: 99.97% INHALATION
     Route: 055
     Dates: start: 20090911

REACTIONS (10)
  - ANAEMIA [None]
  - ANAESTHETIC COMPLICATION [None]
  - BLOOD PRESSURE DECREASED [None]
  - COELIAC DISEASE [None]
  - DELAYED RECOVERY FROM ANAESTHESIA [None]
  - FLUID INTAKE REDUCED [None]
  - HEART RATE DECREASED [None]
  - HYPOPHAGIA [None]
  - LETHARGY [None]
  - VOMITING [None]
